FAERS Safety Report 20005189 (Version 2)
Quarter: 2021Q4

REPORT INFORMATION
  Report Type: Spontaneous
  Country: SI (occurrence: SI)
  Receive Date: 20211028
  Receipt Date: 20211102
  Transmission Date: 20220304
  Serious: Yes (Other)
  Sender: FDA-Public Use
  Company Number: SI-009507513-2109SVN005358

PATIENT
  Sex: Male

DRUGS (1)
  1. KEYTRUDA [Suspect]
     Active Substance: PEMBROLIZUMAB
     Indication: Adenocarcinoma of colon
     Dosage: 400 (UNITS NOT PROVIDED), EVERY 6 WEEKS
     Dates: start: 202009, end: 20210923

REACTIONS (1)
  - Blood glucose increased [Unknown]
